FAERS Safety Report 13292490 (Version 2)
Quarter: 2017Q2

REPORT INFORMATION
  Report Type: Spontaneous
  Country: IT (occurrence: IT)
  Receive Date: 20170303
  Receipt Date: 20170612
  Transmission Date: 20170830
  Serious: Yes (Other)
  Sender: FDA-Public Use
  Company Number: IT-ROCHE-1901239

PATIENT
  Age: 61 Year
  Sex: Female

DRUGS (3)
  1. METHOTREXATE (METHOTREXATE SODIUM) [Concomitant]
     Active Substance: METHOTREXATE SODIUM
     Dosage: 50 MG/ML 1 X 0.15 ML SYRINGE
     Route: 058
  2. ROACTEMRA [Suspect]
     Active Substance: TOCILIZUMAB
     Indication: RHEUMATOID ARTHRITIS
     Dosage: 162 MG 0.9 ML - 12 (3X4) PRE-FILLED SYRINGES
     Route: 058
     Dates: start: 20160907, end: 20161224
  3. HUMIRA [Suspect]
     Active Substance: ADALIMUMAB
     Indication: RHEUMATOID ARTHRITIS
     Dosage: 40 MG 2 X 0.8 ML PRE-FILLED PENS + 2 PADS SOAKED IN ALCOHOL
     Route: 058
     Dates: start: 20151207, end: 20160706

REACTIONS (1)
  - Superficial spreading melanoma stage I [Unknown]

NARRATIVE: CASE EVENT DATE: 20161224
